FAERS Safety Report 6432011-9 (Version None)
Quarter: 2009Q4

REPORT INFORMATION
  Report Type: 
  Country: None (occurrence: None)
  Receive Date: 20091109
  Receipt Date: 20091105
  Transmission Date: 20100525
  Serious: Yes (Hospitalization)
  Sender: FDA-Public Use
  Company Number: US-SP-2009-00478

PATIENT
  Age: 65 Year
  Sex: Male

DRUGS (5)
  1. THERACYS [Suspect]
     Indication: BLADDER CANCER
     Route: 043
     Dates: start: 20090130
  2. THERACYS [Suspect]
     Route: 043
     Dates: start: 20090130
  3. LOPRESSOR [Concomitant]
  4. SIMVASTATIN [Concomitant]
  5. SANCTURA [Concomitant]

REACTIONS (7)
  - CHILLS [None]
  - CYSTITIS NONINFECTIVE [None]
  - ERYTHEMA [None]
  - HAEMATURIA [None]
  - OEDEMA PERIPHERAL [None]
  - POLLAKIURIA [None]
  - UPPER RESPIRATORY TRACT INFECTION [None]
